FAERS Safety Report 4960816-X (Version None)
Quarter: 2006Q1

REPORT INFORMATION
  Report Type: 
  Country: None (occurrence: None)
  Receive Date: 20060331
  Receipt Date: 20060331
  Transmission Date: 20060701
  Serious: No
  Sender: FDA-Public Use
  Company Number: None

PATIENT
  Age: 56 Year
  Sex: Female
  Weight: 54.4316 kg

DRUGS (1)
  1. ROSAC CREAM 10% / 5% STIEFEL [Suspect]
     Indication: ACNE
     Dosage: AS DIRECTED TOP
     Route: 061
     Dates: start: 20060218, end: 20060301

REACTIONS (4)
  - DRY SKIN [None]
  - ERYTHEMA [None]
  - PHARMACEUTICAL PRODUCT COMPLAINT [None]
  - SKIN IRRITATION [None]
